FAERS Safety Report 6709014-X (Version None)
Quarter: 2010Q2

REPORT INFORMATION
  Report Type: 
  Country: None (occurrence: None)
  Receive Date: 20100503
  Receipt Date: 20100503
  Transmission Date: 20101027
  Serious: Yes (Disabling)
  Sender: FDA-Public Use
  Company Number: None

PATIENT
  Age: 51 Year
  Sex: Male
  Weight: 92.5 kg

DRUGS (2)
  1. CYCLOSPORINE [Suspect]
     Indication: RENAL TRANSPLANT
     Dosage: 100 MG BID P.O.
     Route: 048
  2. CYCLOSPORINE [Suspect]
     Dosage: 25 MG BID P.O. NEVER USED
     Route: 048

REACTIONS (3)
  - HYPERPLASIA [None]
  - PARATHYROID DISORDER [None]
  - SCAR [None]
